FAERS Safety Report 6994015-7 (Version None)
Quarter: 2010Q3

REPORT INFORMATION
  Report Type: 
  Country: None (occurrence: None)
  Receive Date: 20100917
  Receipt Date: 20100713
  Transmission Date: 20110219
  Serious: No
  Sender: FDA-Public Use
  Company Number: US-ASTRAZENECA-2010SE32644

PATIENT
  Age: 88 Year
  Sex: Female
  Weight: 46.3 kg

DRUGS (8)
  1. SEROQUEL [Suspect]
     Indication: INSOMNIA
     Route: 048
     Dates: start: 20100501, end: 20100501
  2. SEROQUEL [Suspect]
     Indication: HALLUCINATION, AUDITORY
     Route: 048
     Dates: start: 20100501, end: 20100501
  3. SEROQUEL [Suspect]
     Route: 048
     Dates: start: 20100501, end: 20100501
  4. SEROQUEL [Suspect]
     Route: 048
     Dates: start: 20100501, end: 20100501
  5. SEROQUEL [Suspect]
     Route: 048
     Dates: start: 20100501, end: 20100701
  6. SEROQUEL [Suspect]
     Route: 048
     Dates: start: 20100501, end: 20100701
  7. SEROQUEL [Suspect]
     Route: 048
     Dates: start: 20100701
  8. SEROQUEL [Suspect]
     Route: 048
     Dates: start: 20100701

REACTIONS (3)
  - DECREASED APPETITE [None]
  - MIDDLE INSOMNIA [None]
  - WEIGHT DECREASED [None]
